FAERS Safety Report 6551142-6 (Version None)
Quarter: 2010Q1

REPORT INFORMATION
  Report Type: 
  Country: None (occurrence: None)
  Receive Date: 20100121
  Receipt Date: 20100108
  Transmission Date: 20100710
  Serious: Yes (Other)
  Sender: FDA-Public Use
  Company Number: DE-1180371

PATIENT
  Age: 8 Year
  Sex: Male

DRUGS (1)
  1. VEXOL [Suspect]
     Indication: CONJUNCTIVAL DISORDER
     Dosage: OPHTHALMIC
     Route: 047

REACTIONS (1)
  - GROWTH RETARDATION [None]
